FAERS Safety Report 11071567 (Version 1)
Quarter: 2015Q2

REPORT INFORMATION
  Report Type: Spontaneous
  Country: US (occurrence: None)
  Receive Date: 20150424
  Receipt Date: 20150424
  Transmission Date: 20150821
  Serious: Yes (Disabling, Other)
  Sender: FDA-Public Use
  Company Number: A1084356A

PATIENT
  Age: 33 Year
  Sex: Male
  Weight: 86.8 kg

DRUGS (5)
  1. METHAMPHETAMINE (METHAMPHETAMINE) [Suspect]
     Active Substance: METHAMPHETAMINE
     Indication: PRODUCT USED FOR UNKNOWN INDICATION
     Dates: end: 20140730
  2. OXYCODONE [Concomitant]
     Active Substance: OXYCODONE
  3. BACTRIM DS [Suspect]
     Active Substance: SULFAMETHOXAZOLE\TRIMETHOPRIM
     Indication: PRODUCT USED FOR UNKNOWN INDICATION
     Dates: end: 20140730
  4. TIVICAY [Suspect]
     Active Substance: DOLUTEGRAVIR SODIUM
     Indication: HIV INFECTION
     Route: 048
     Dates: start: 201406, end: 20140730
  5. TRUVADA [Suspect]
     Active Substance: EMTRICITABINE\TENOFOVIR DISOPROXIL FUMARATE
     Indication: HIV INFECTION
     Route: 048
     Dates: end: 20140730

REACTIONS (24)
  - Transaminases increased [None]
  - Drug hypersensitivity [None]
  - Liver function test abnormal [None]
  - Hepatitis C [None]
  - Liver injury [None]
  - Jaundice [None]
  - Ocular icterus [None]
  - Hepatitis acute [None]
  - Faeces pale [None]
  - Rash [None]
  - Vomiting [None]
  - Blood bilirubin increased [None]
  - Pruritus [None]
  - Retroperitoneal lymphadenopathy [None]
  - Hepatomegaly [None]
  - Nausea [None]
  - Splenomegaly [None]
  - Lymphoma [None]
  - Pancreatic mass [None]
  - Chromaturia [None]
  - Immune reconstitution inflammatory syndrome [None]
  - Abdominal pain upper [None]
  - Diarrhoea [None]
  - Pancreatitis [None]

NARRATIVE: CASE EVENT DATE: 20140704
